FAERS Safety Report 6354950-X (Version None)
Quarter: 2009Q3

REPORT INFORMATION
  Report Type: 
  Country: None (occurrence: None)
  Receive Date: 20090914
  Receipt Date: 20090908
  Transmission Date: 20100115
  Serious: Yes (Hospitalization)
  Sender: FDA-Public Use
  Company Number: A0775703A

PATIENT
  Age: 55 Year
  Sex: Male

DRUGS (1)
  1. AVANDIA [Suspect]
     Indication: DIABETES MELLITUS
     Dosage: 8MG PER DAY
     Route: 048
     Dates: start: 20000406, end: 20070301

REACTIONS (4)
  - CARDIAC ARREST [None]
  - CEREBRAL ISCHAEMIA [None]
  - HYPOXIC ENCEPHALOPATHY [None]
  - RENAL INJURY [None]
